FAERS Safety Report 5743083-9 (Version None)
Quarter: 2008Q2

REPORT INFORMATION
  Report Type: 
  Country: None (occurrence: None)
  Receive Date: 20080516
  Receipt Date: 20080215
  Transmission Date: 20081010
  Serious: Yes (Other)
  Sender: FDA-Public Use
  Company Number: 0801871US

PATIENT
  Age: 63 Year
  Sex: Male

DRUGS (1)
  1. SANCTURA XR [Suspect]
     Indication: HYPERTONIC BLADDER
     Dosage: 60 MG, QD, ORAL
     Route: 048
     Dates: start: 20080201, end: 20080201

REACTIONS (2)
  - ABDOMINAL PAIN UPPER [None]
  - STEVENS-JOHNSON SYNDROME [None]
